FAERS Safety Report 24045102 (Version 1)
Quarter: 2024Q3

REPORT INFORMATION
  Report Type: Report from Study
  Country: US (occurrence: US)
  Receive Date: 20240703
  Receipt Date: 20240703
  Transmission Date: 20241017
  Serious: Yes (Hospitalization)
  Sender: ABBVIE
  Company Number: US-ABBVIE-5820927

PATIENT

DRUGS (1)
  1. RESTASIS [Suspect]
     Active Substance: CYCLOSPORINE
     Indication: Product used for unknown indication
     Dosage: OPHTHALMIC EMULSION 0.05%?FORM STRENGTH: .05 MILLIGRAM?START DATE TEXT: STARTED PROGRAM 22-MAY-2021
     Route: 047

REACTIONS (2)
  - Fall [Not Recovered/Not Resolved]
  - Concussion [Not Recovered/Not Resolved]
